FAERS Safety Report 15601196 (Version 1)
Quarter: 2018Q4

REPORT INFORMATION
  Report Type: Spontaneous
  Country: US (occurrence: US)
  Receive Date: 20181108
  Receipt Date: 20181108
  Transmission Date: 20190205
  Serious: Yes (Hospitalization)
  Sender: FDA-Public Use
  Company Number: None

PATIENT
  Age: 20 Year
  Sex: Male

DRUGS (4)
  1. PHYTONADIONE. [Concomitant]
     Active Substance: PHYTONADIONE
  2. LEVABUTEROL NEB [Concomitant]
  3. PULMOZYME [Suspect]
     Active Substance: DORNASE ALFA
     Indication: CYSTIC FIBROSIS
     Dosage: ?          OTHER FREQUENCY:1 AMPULE QD;OTHER ROUTE:INHALE?
     Dates: start: 20161103
  4. ONE TOUCH [Concomitant]

REACTIONS (1)
  - Infective pulmonary exacerbation of cystic fibrosis [None]
